FAERS Safety Report 11051160 (Version 1)
Quarter: 2015Q2

REPORT INFORMATION
  Report Type: Spontaneous
  Country: DE (occurrence: DE)
  Receive Date: 20150421
  Receipt Date: 20150421
  Transmission Date: 20150821
  Serious: Yes (Hospitalization, Disabling)
  Sender: FDA-Public Use
  Company Number: DE-SA-2015SA048578

PATIENT
  Age: 76 Year
  Sex: Female
  Weight: 79.9 kg

DRUGS (5)
  1. CLOPIDOGREL BISULFATE. [Suspect]
     Active Substance: CLOPIDOGREL BISULFATE
     Route: 048
     Dates: start: 20150320
  2. PHENPROCOUMON [Suspect]
     Active Substance: PHENPROCOUMON
     Dosage: FREQUENCY: 7 IN 1 DAY
     Route: 048
     Dates: start: 20150323
  3. MONO-EMBOLEX [Suspect]
     Active Substance: CERTOPARIN SODIUM
     Route: 048
     Dates: start: 20150323
  4. ASPIRIN. [Suspect]
     Active Substance: ASPIRIN
     Route: 048
     Dates: start: 20150320
  5. ELIQUIS [Suspect]
     Active Substance: APIXABAN
     Route: 048
     Dates: start: 20150320

REACTIONS (2)
  - Haematoma [Not Recovered/Not Resolved]
  - Compartment syndrome [Not Recovered/Not Resolved]

NARRATIVE: CASE EVENT DATE: 20150323
